FAERS Safety Report 7617028-0 (Version None)
Quarter: 2011Q3

REPORT INFORMATION
  Report Type: 
  Country: None (occurrence: None)
  Receive Date: 20110718
  Receipt Date: 20091119
  Transmission Date: 20111222
  Serious: Yes (Death, Hospitalization, Other)
  Sender: FDA-Public Use
  Company Number: US-BAYER-200940142NA

PATIENT
  Age: 75 Year
  Sex: Female
  Weight: 68 kg

DRUGS (19)
  1. TRASYLOL [Suspect]
     Dosage: 200 ML OF LOADING DOSE
     Route: 042
     Dates: start: 20050316, end: 20050316
  2. TIAZAC [Concomitant]
     Dosage: 240 MG, QD
     Route: 048
  3. EPINEPHRINE [Concomitant]
     Dosage: UNK
     Route: 042
     Dates: start: 20050316
  4. MORPHINE [Concomitant]
     Dosage: 30 MG
     Route: 042
     Dates: start: 20050316
  5. TRASYLOL [Suspect]
     Indication: CORONARY ARTERY BYPASS
     Dosage: 1 ML, ONCE
     Route: 042
     Dates: start: 20050316, end: 20050316
  6. TRASYLOL [Suspect]
     Dosage: 50ML/HR INFUSION
     Route: 042
     Dates: start: 20050316, end: 20050316
  7. ACETYLSALICYLIC ACID SRT [Concomitant]
     Dosage: 81 MG, QD
     Route: 048
  8. ADENOSINE [Concomitant]
     Dosage: 6 MG
     Route: 042
     Dates: start: 20050316
  9. FENTANYL-100 [Concomitant]
     Dosage: UNK
     Route: 042
     Dates: start: 20050316
  10. PAVULON [Concomitant]
     Dosage: UNK
     Route: 042
     Dates: start: 20050316
  11. LASIX [Concomitant]
     Dosage: 40 MG, QD
     Route: 048
  12. PRAVACHOL [Concomitant]
     Dosage: 40 MG, QD
     Route: 048
  13. PLAVIX [Concomitant]
     Dosage: 75MG DAILY X 5 DAYS
     Route: 048
  14. COUMADIN [Concomitant]
     Dosage: 5MG ALTERNATING WITH 2.5 MG DAILY
     Route: 048
  15. ZINACEF [Concomitant]
     Dosage: 1.5 G
     Route: 042
     Dates: start: 20050316
  16. VERSED [Concomitant]
     Dosage: UNK
     Route: 042
     Dates: start: 20050316
  17. DIOVAN [Concomitant]
     Dosage: 160 MG, QD
     Route: 048
  18. HEPARIN [Concomitant]
     Dosage: UNK
     Route: 042
     Dates: start: 20050316
  19. DOPAMINE HCL [Concomitant]
     Dosage: 5 MICROGRAMS/KILOGRAM/MINUTE
     Route: 042
     Dates: start: 20050316

REACTIONS (6)
  - UNEVALUABLE EVENT [None]
  - RENAL FAILURE ACUTE [None]
  - INJURY [None]
  - DEATH [None]
  - RENAL FAILURE [None]
  - PAIN [None]
